FAERS Safety Report 19458833 (Version 1)
Quarter: 2021Q2

REPORT INFORMATION
  Report Type: Spontaneous
  Country: US (occurrence: US)
  Receive Date: 20210624
  Receipt Date: 20210624
  Transmission Date: 20210717
  Serious: Yes (Hospitalization, Other)
  Sender: FDA-Public Use
  Company Number: US-JNJFOC-20210648141

PATIENT
  Age: 82 Year
  Sex: Female
  Weight: 44.95 kg

DRUGS (6)
  1. IBUPROFEN. [Concomitant]
     Active Substance: IBUPROFEN
     Indication: BACK PAIN
     Route: 065
  2. METOPROLOL. [Suspect]
     Active Substance: METOPROLOL
     Indication: BACK PAIN
     Route: 065
  3. TYLENOL [Concomitant]
     Active Substance: ACETAMINOPHEN
     Indication: BACK PAIN
     Route: 065
  4. ASPRIN [Suspect]
     Active Substance: ASPIRIN
     Indication: BACK PAIN
     Route: 065
  5. KETOROLAC [Suspect]
     Active Substance: KETOROLAC TROMETHAMINE
     Indication: BACK PAIN
     Route: 042
  6. ULTRAM [Suspect]
     Active Substance: TRAMADOL HYDROCHLORIDE
     Indication: BACK PAIN
     Route: 065

REACTIONS (15)
  - COVID-19 [Unknown]
  - Dysphonia [Unknown]
  - Dysarthria [Unknown]
  - Pulmonary oedema [Unknown]
  - Mood altered [Unknown]
  - Belligerence [Unknown]
  - Drug ineffective [Not Recovered/Not Resolved]
  - Decreased appetite [Unknown]
  - Dyspnoea [Unknown]
  - Bronchospasm [Unknown]
  - Urinary retention [Unknown]
  - Blood pressure increased [Unknown]
  - Affect lability [Unknown]
  - Dysphagia [Unknown]
  - Nausea [Unknown]

NARRATIVE: CASE EVENT DATE: 20210601
